FAERS Safety Report 5931650-9 (Version None)
Quarter: 2008Q4

REPORT INFORMATION
  Report Type: 
  Country: None (occurrence: None)
  Receive Date: 20081009
  Receipt Date: 20080409
  Transmission Date: 20090506
  Serious: Yes (Death)
  Sender: FDA-Public Use
  Company Number: PHEH2008US03629

PATIENT
  Age: 58 Year
  Sex: Male

DRUGS (1)
  1. ZOLEDRONATE (ZOLEDRONATE) SOLUTION FOR INJECTION [Suspect]
     Indication: LUNG NEOPLASM MALIGNANT
     Dosage: 4 MG UNK INFUSION
     Dates: start: 20080112, end: 20080326

REACTIONS (1)
  - NEOPLASM MALIGNANT [None]
